FAERS Safety Report 6127156-7 (Version None)
Quarter: 2009Q1

REPORT INFORMATION
  Report Type: 
  Country: None (occurrence: None)
  Receive Date: 20090320
  Receipt Date: 20090305
  Transmission Date: 20090719
  Serious: Yes (Other)
  Sender: FDA-Public Use
  Company Number: GB-PFIZER INC-2009182087

PATIENT

DRUGS (4)
  1. SULFASALAZINE [Suspect]
  2. AZATHIOPRINE [Suspect]
  3. MESALAZINE [Concomitant]
  4. PREDNISOLONE [Concomitant]

REACTIONS (2)
  - DERMATITIS ALLERGIC [None]
  - PANCREATITIS [None]
